FAERS Safety Report 8130071-0 (Version None)
Quarter: 2012Q1

REPORT INFORMATION
  Report Type: 
  Country: None (occurrence: None)
  Receive Date: 20120210
  Receipt Date: 20120126
  Transmission Date: 20120608
  Serious: Yes (Other)
  Sender: FDA-Public Use
  Company Number: CHPA2012US002218

PATIENT
  Age: 36 Year
  Sex: Female

DRUGS (1)
  1. EXCEDRIN TENSION HEADACHE CAPLETS [Suspect]
     Indication: TENSION HEADACHE
     Dosage: 2 DF, UNK
     Route: 048
     Dates: end: 20120120

REACTIONS (2)
  - GASTRITIS [None]
  - ULCER [None]
